FAERS Safety Report 7259037-X (Version None)
Quarter: 2011Q1

REPORT INFORMATION
  Report Type: 
  Country: None (occurrence: None)
  Receive Date: 20110129
  Receipt Date: 20100618
  Transmission Date: 20110831
  Serious: Yes (Other)
  Sender: FDA-Public Use
  Company Number: US-ABBOTT-10P-163-0652843-00

PATIENT
  Age: 41 Year
  Sex: Male
  Weight: 86.26 kg

DRUGS (11)
  1. PREDNISONE [Concomitant]
     Indication: PRODUCT USED FOR UNKNOWN INDICATION
  2. DICYCLOMINE [Concomitant]
     Indication: PRODUCT USED FOR UNKNOWN INDICATION
  3. HUMIRA [Suspect]
     Indication: IRRITABLE BOWEL SYNDROME
     Dosage: RECEIVED DAY AFTER 1ST HALF OF LOADING DOSE
     Route: 058
     Dates: start: 20100101, end: 20100101
  4. OXYCONTIN [Concomitant]
     Indication: PAIN
  5. HUMIRA [Suspect]
     Route: 058
     Dates: start: 20100501, end: 20100501
  6. PENTASA [Concomitant]
     Indication: PRODUCT USED FOR UNKNOWN INDICATION
  7. NEXIUM [Concomitant]
     Indication: DYSPEPSIA
  8. HUMIRA [Suspect]
     Indication: CROHN'S DISEASE
     Dosage: FIRST HALF OF LOADING DOSE
     Route: 058
     Dates: start: 20100101, end: 20100101
  9. HUMIRA [Suspect]
     Route: 058
  10. HUMIRA [Suspect]
     Route: 058
  11. PHENERGAN [Concomitant]
     Indication: NAUSEA

REACTIONS (5)
  - OPEN FRACTURE [None]
  - HERPES ZOSTER [None]
  - RASH [None]
  - BACK PAIN [None]
  - CROHN'S DISEASE [None]
